FAERS Safety Report 6271107-1 (Version None)
Quarter: 2009Q3

REPORT INFORMATION
  Report Type: 
  Country: None (occurrence: None)
  Receive Date: 20090716
  Receipt Date: 20090205
  Transmission Date: 20100115
  Serious: No
  Sender: FDA-Public Use
  Company Number: US-TYCO HEALTHCARE/MALLINCKRODT-T200900305

PATIENT
  Sex: Male
  Weight: 89.796 kg

DRUGS (6)
  1. OXYCODONE HCL AND ACETAMINOPHEN [Suspect]
     Indication: BACK PAIN
     Dosage: 1 TAB Q 4-6 HRS PRN
     Route: 048
     Dates: start: 20090119
  2. CLONAZEPAM [Concomitant]
     Indication: PANIC DISORDER
     Dosage: 0.5 MG, TID
     Route: 048
     Dates: start: 19940101
  3. MIRAPEX [Concomitant]
     Indication: RESTLESS LEGS SYNDROME
     Dosage: 1 MG, TID
     Route: 048
     Dates: start: 19970101
  4. SYNTHROID [Concomitant]
     Indication: HYPOTHYROIDISM
     Dosage: .0225, QD
     Route: 048
  5. HYDROCHLOROTHIAZIDE [Concomitant]
     Dosage: UNK
     Route: 048
  6. ZOCOR [Concomitant]
     Indication: BLOOD CHOLESTEROL INCREASED
     Dosage: 40 MG, Q PM
     Route: 048

REACTIONS (2)
  - DIZZINESS [None]
  - FEELING ABNORMAL [None]
